FAERS Safety Report 17405085 (Version 2)
Quarter: 2020Q3

REPORT INFORMATION
  Report Type: Report from Study
  Country: US (occurrence: US)
  Receive Date: 20200212
  Receipt Date: 20200915
  Transmission Date: 20201102
  Serious: Yes (Hospitalization)
  Sender: FDA-Public Use
  Company Number: US-ROCHE-2547064

PATIENT
  Age: 69 Year
  Sex: Male
  Weight: 105.4 kg

DRUGS (2)
  1. OBINUTUZUMAB. [Suspect]
     Active Substance: OBINUTUZUMAB
     Indication: CHRONIC LYMPHOCYTIC LEUKAEMIA
     Dosage: 100 MG IV ON DAY 1, CYCLE 1, 900 MG IV ON DAY 2 CYCLE 1, 1000 MG IV ON DAY 8 CYCLE 1, 1000 MG IV ON
     Route: 042
     Dates: start: 20200120
  2. IBRUTINIB [Suspect]
     Active Substance: IBRUTINIB
     Indication: CHRONIC LYMPHOCYTIC LEUKAEMIA
     Dosage: ON DAYS 1?28, CYCLES 1?19 ?DATE OF LAST ADMINISTERED DOSE: 20/JAN/2020?TOTAL DOSE ADMINISTERED IN TH
     Route: 048
     Dates: start: 20200120

REACTIONS (2)
  - Acute respiratory failure [Recovered/Resolved]
  - Hypersensitivity [Recovered/Resolved]

NARRATIVE: CASE EVENT DATE: 20200120
